FAERS Safety Report 13660114 (Version 2)
Quarter: 2017Q3

REPORT INFORMATION
  Report Type: Spontaneous
  Country: FR (occurrence: FR)
  Receive Date: 20170616
  Receipt Date: 20170911
  Transmission Date: 20171127
  Serious: Yes (Other)
  Sender: FDA-Public Use
  Company Number: FR-UCBSA-2017022945

PATIENT
  Age: 55 Year
  Sex: Female
  Weight: 99 kg

DRUGS (2)
  1. CIMZIA [Suspect]
     Active Substance: CERTOLIZUMAB PEGOL
     Indication: RHEUMATOID ARTHRITIS
     Dosage: 200 MG, EV 2 WEEKS(QOW)
     Dates: start: 201610
  2. PILOCARPINE. [Concomitant]
     Active Substance: PILOCARPINE
     Indication: PRODUCT USED FOR UNKNOWN INDICATION

REACTIONS (1)
  - Cutaneous sarcoidosis [Recovering/Resolving]

NARRATIVE: CASE EVENT DATE: 201705
